FAERS Safety Report 12774124 (Version 2)
Quarter: 2016Q4

REPORT INFORMATION
  Report Type: Spontaneous
  Country: BR (occurrence: BR)
  Receive Date: 20160923
  Receipt Date: 20161107
  Transmission Date: 20170207
  Serious: Yes (Disabling)
  Sender: FDA-Public Use
  Company Number: BR-AUROBINDO-AUR-APL-2016-11713

PATIENT
  Age: 55 Year
  Sex: Male
  Weight: 51 kg

DRUGS (1)
  1. SERTRALINE [Suspect]
     Active Substance: SERTRALINE HYDROCHLORIDE
     Indication: ANXIETY
     Dosage: 100MG BEFORE/NOW 50 MG
     Route: 048
     Dates: start: 20160829

REACTIONS (5)
  - Motion sickness [Not Recovered/Not Resolved]
  - Extra dose administered [Recovered/Resolved]
  - Malaise [Recovered/Resolved]
  - Nausea [Not Recovered/Not Resolved]
  - Diarrhoea [Recovered/Resolved]

NARRATIVE: CASE EVENT DATE: 20160829
